FAERS Safety Report 8020019-1 (Version None)
Quarter: 2011Q4

REPORT INFORMATION
  Report Type: 
  Country: None (occurrence: None)
  Receive Date: 20111227
  Receipt Date: 20111216
  Transmission Date: 20120403
  Serious: Yes (Death, Life-Threatening, Hospitalization)
  Sender: FDA-Public Use
  Company Number: 201112IM002241

PATIENT
  Age: 15 Year
  Sex: Male
  Weight: 37 kg

DRUGS (1)
  1. INTERFERON GAMMA NOS [Suspect]
     Indication: CHRONIC GRANULOMATOUS DISEASE
     Dosage: 50 UG/M2, DAILY, SUBCUTANEOUS
     Route: 058
     Dates: start: 20050101, end: 20101230

REACTIONS (5)
  - ASPERGILLOSIS [None]
  - PNEUMONIA [None]
  - VENTRICULAR TACHYCARDIA [None]
  - SEPTIC SHOCK [None]
  - NOSOCOMIAL INFECTION [None]
